FAERS Safety Report 7032077-1 (Version None)
Quarter: 2010Q4

REPORT INFORMATION
  Report Type: 
  Country: None (occurrence: None)
  Receive Date: 20101007
  Receipt Date: 20100419
  Transmission Date: 20110411
  Serious: No
  Sender: FDA-Public Use
  Company Number: US-KINGPHARMUSA00001-K201000468

PATIENT
  Sex: Male

DRUGS (4)
  1. SONATA [Suspect]
     Indication: MIDDLE INSOMNIA
     Dosage: UNK
     Route: 048
  2. LUNESTA [Suspect]
     Indication: MIDDLE INSOMNIA
     Dosage: 3 MG, PRN
     Route: 048
     Dates: start: 20060101
  3. XANAX [Concomitant]
  4. RESTORIL [Concomitant]
     Dosage: UNK

REACTIONS (1)
  - DRUG EFFECT DECREASED [None]
